FAERS Safety Report 7014409-3 (Version None)
Quarter: 2010Q3

REPORT INFORMATION
  Report Type: 
  Country: None (occurrence: None)
  Receive Date: 20100927
  Receipt Date: 20100914
  Transmission Date: 20110219
  Serious: Yes (Other)
  Sender: FDA-Public Use
  Company Number: US-ELI_LILLY_AND_COMPANY-US201005002939

PATIENT
  Sex: Male

DRUGS (5)
  1. HUMATROPE [Suspect]
     Indication: HYPOPITUITARISM
     Dosage: 100 UG, DAILY (1/D)
     Dates: start: 20070416
  2. ANDROGEL [Concomitant]
  3. LEVOTHYROXINE SODIUM [Concomitant]
     Dosage: 88 UG, DAILY (1/D)
  4. PREDNISONE [Concomitant]
     Dosage: 6 MG, DAILY (1/D)
  5. LIPITOR [Concomitant]
     Dosage: 10 MG, QOD
     Dates: end: 20070723

REACTIONS (6)
  - DEVICE BREAKAGE [None]
  - INCORRECT DOSE ADMINISTERED [None]
  - INTRAOCULAR LENS IMPLANT [None]
  - LENS DISLOCATION [None]
  - VISUAL ACUITY REDUCED [None]
  - VITRECTOMY [None]
